FAERS Safety Report 7193265-7 (Version None)
Quarter: 2010Q4

REPORT INFORMATION
  Report Type: 
  Country: None (occurrence: None)
  Receive Date: 20101223
  Receipt Date: 20100902
  Transmission Date: 20110411
  Serious: No
  Sender: FDA-Public Use
  Company Number: US-AMGEN-KDL435753

PATIENT

DRUGS (7)
  1. ENBREL [Suspect]
     Indication: PRODUCT USED FOR UNKNOWN INDICATION
     Dosage: 50 MG, QWK
     Route: 058
  2. CELECOXIB [Concomitant]
     Dosage: 50 MG, UNK
  3. ATORVASTATIN CALCIUM [Concomitant]
     Dosage: 10 MG, UNK
  4. METHOTREXATE [Concomitant]
  5. LISINOPRIL [Concomitant]
     Dosage: 2.5 MG, UNK
  6. FOLIC ACID [Concomitant]
     Dosage: 1 MG, UNK
  7. TRAMADOL [Concomitant]
     Dosage: UNK UNK, UNK

REACTIONS (1)
  - VISUAL IMPAIRMENT [None]
